FAERS Safety Report 5869092-7 (Version None)
Quarter: 2008Q3

REPORT INFORMATION
  Report Type: 
  Country: None (occurrence: None)
  Receive Date: 20080903
  Receipt Date: 20080829
  Transmission Date: 20090109
  Serious: Yes (Death, Other)
  Sender: FDA-Public Use
  Company Number: JP-AVENTIS-200812668JP

PATIENT
  Age: 73 Year
  Sex: Female

DRUGS (1)
  1. AMARYL [Suspect]
     Dates: start: 20080620, end: 20080622

REACTIONS (4)
  - CONDITION AGGRAVATED [None]
  - HEPATIC CIRRHOSIS [None]
  - LOSS OF CONSCIOUSNESS [None]
  - MEDICATION ERROR [None]
